FAERS Safety Report 8280560-3 (Version None)
Quarter: 2012Q2

REPORT INFORMATION
  Report Type: 
  Country: None (occurrence: None)
  Receive Date: 20120412
  Receipt Date: 20111007
  Transmission Date: 20120825
  Serious: No
  Sender: FDA-Public Use
  Company Number: US-ASTRAZENECA-2011SE37571

PATIENT
  Age: 65 Year
  Sex: Female

DRUGS (1)
  1. NEXIUM [Suspect]
     Route: 048
     Dates: start: 20040101

REACTIONS (4)
  - DEPRESSION [None]
  - MALAISE [None]
  - CARPAL TUNNEL SYNDROME [None]
  - HYPOAESTHESIA [None]
